FAERS Safety Report 8018706-4 (Version None)
Quarter: 2012Q1

REPORT INFORMATION
  Report Type: 
  Country: None (occurrence: None)
  Receive Date: 20120103
  Receipt Date: 20120103
  Transmission Date: 20120608
  Serious: No
  Sender: FDA-Public Use
  Company Number: None

PATIENT
  Age: 76 Year
  Sex: Male
  Weight: 99.79 kg

DRUGS (1)
  1. LEVAQUIN [Suspect]
     Indication: BRONCHITIS
     Dosage: ONE TABLET
     Route: 048
     Dates: start: 20111127, end: 20111204

REACTIONS (3)
  - TENDON PAIN [None]
  - GAIT DISTURBANCE [None]
  - TENDON DISORDER [None]
